FAERS Safety Report 18156228 (Version 1)
Quarter: 2020Q3

REPORT INFORMATION
  Report Type: Spontaneous
  Country: US (occurrence: US)
  Receive Date: 20200817
  Receipt Date: 20200817
  Transmission Date: 20201103
  Serious: Yes (Disabling, Other)
  Sender: FDA-Public Use
  Company Number: US-RECORDATI RARE DISEASES-US-R13005-19-00287

PATIENT
  Age: 78 Year
  Sex: Female

DRUGS (1)
  1. TRANXENE [Suspect]
     Active Substance: CLORAZEPATE DIPOTASSIUM
     Indication: PRODUCT USED FOR UNKNOWN INDICATION
     Route: 065
     Dates: start: 1975

REACTIONS (5)
  - Dizziness [Not Recovered/Not Resolved]
  - Vision blurred [Not Recovered/Not Resolved]
  - Withdrawal syndrome [Unknown]
  - Off label use [Unknown]
  - Confusional state [Not Recovered/Not Resolved]
